FAERS Safety Report 13874154 (Version 6)
Quarter: 2017Q4

REPORT INFORMATION
  Report Type: Spontaneous
  Country: US (occurrence: US)
  Receive Date: 20170816
  Receipt Date: 20171127
  Transmission Date: 20180320
  Serious: Yes (Hospitalization)
  Sender: FDA-Public Use
  Company Number: US-ACTELION-A-US2016-133253

PATIENT
  Age: 67 Year
  Sex: Female
  Weight: 80.73 kg

DRUGS (5)
  1. TRACLEER [Suspect]
     Active Substance: BOSENTAN
     Indication: PULMONARY ARTERIAL HYPERTENSION
     Dosage: 125 MG, BID
     Route: 048
  2. TRACLEER [Suspect]
     Active Substance: BOSENTAN
     Dosage: 125 MG, BID
     Route: 048
  3. SILDENAFIL. [Concomitant]
     Active Substance: SILDENAFIL
  4. TYVASO [Concomitant]
     Active Substance: TREPROSTINIL
  5. OXYGEN. [Concomitant]
     Active Substance: OXYGEN

REACTIONS (11)
  - Extra dose administered [Unknown]
  - Haemorrhage [Unknown]
  - Malaise [Unknown]
  - Fall [Unknown]
  - Pulmonary embolism [Unknown]
  - No adverse event [Unknown]
  - Syncope [Unknown]
  - Dizziness [Unknown]
  - Skin abrasion [Unknown]
  - Head injury [Unknown]
  - Amnesia [Unknown]

NARRATIVE: CASE EVENT DATE: 20160314
